FAERS Safety Report 11703904 (Version 1)
Quarter: 2015Q4

REPORT INFORMATION
  Report Type: Spontaneous
  Country: BR (occurrence: BR)
  Receive Date: 20151106
  Receipt Date: 20151106
  Transmission Date: 20160304
  Serious: Yes (Other)
  Sender: FDA-Public Use
  Company Number: BR-AMGEN-BRASP2015116035

PATIENT
  Age: 64 Year
  Sex: Female
  Weight: 40 kg

DRUGS (1)
  1. ENBREL [Suspect]
     Active Substance: ETANERCEPT
     Indication: RHEUMATOID ARTHRITIS
     Dosage: 50 MG, ONCE WEEKLY
     Route: 058
     Dates: start: 200810

REACTIONS (3)
  - Drug ineffective [Unknown]
  - Injection site pain [Unknown]
  - Breast cancer [Unknown]

NARRATIVE: CASE EVENT DATE: 201502
